FAERS Safety Report 9122768 (Version 1)
Quarter: 2013Q1

REPORT INFORMATION
  Report Type: Spontaneous
  Country: CN (occurrence: CN)
  Receive Date: 20130227
  Receipt Date: 20130227
  Transmission Date: 20140127
  Serious: Yes (Death)
  Sender: FDA-Public Use
  Company Number: CN-SANOFI-AVENTIS-2013SA015969

PATIENT
  Age: 55 Year
  Sex: Male

DRUGS (4)
  1. OXALIPLATIN [Suspect]
     Indication: GASTRIC CANCER
     Dosage: STRENGTH: 50 MG, ADMINISTERED ON DAY 1 OF THE CYCLE, CYCLE 1-5
     Route: 041
     Dates: start: 20100402
  2. OXALIPLATIN [Suspect]
     Indication: GASTRIC CANCER
     Dosage: ADMINISTERED ON DAY 1 OF THE CYCLE
     Route: 041
     Dates: start: 20101226, end: 20101226
  3. DOCETAXEL [Concomitant]
     Indication: GASTRIC CANCER
     Dosage: STRENGTH:0.5 ML, DAY 1 AND DAY 8
     Route: 041
     Dates: start: 20100402
  4. DOCETAXEL [Concomitant]
     Indication: GASTRIC CANCER
     Dosage: STRENGTH:0.5 ML: 20 MG
     Route: 041
     Dates: start: 20101226, end: 20101226

REACTIONS (11)
  - Hypersensitivity [Fatal]
  - Nausea [Fatal]
  - Blood pressure decreased [Fatal]
  - Palpitations [Fatal]
  - Dysphoria [Fatal]
  - Loss of consciousness [Fatal]
  - Unresponsive to stimuli [Fatal]
  - Pupillary reflex impaired [Fatal]
  - Mydriasis [Fatal]
  - Cardiac failure [Fatal]
  - Respiratory failure [Fatal]
